FAERS Safety Report 20433094 (Version 1)
Quarter: 2022Q1

REPORT INFORMATION
  Report Type: Spontaneous
  Country: US (occurrence: US)
  Receive Date: 20220205
  Receipt Date: 20220205
  Transmission Date: 20220424
  Serious: No
  Sender: FDA-Public Use
  Company Number: US-SA-SAC20220130000129

PATIENT
  Age: 64 Year
  Sex: Female

DRUGS (1)
  1. THYROGEN [Suspect]
     Active Substance: THYROTROPIN ALFA
     Indication: Endocrine disorder
     Dosage: UNK UNK, 1X

REACTIONS (4)
  - Diarrhoea [Unknown]
  - Headache [Unknown]
  - Chills [Unknown]
  - Nausea [Unknown]
